FAERS Safety Report 8377839-3 (Version None)
Quarter: 2012Q2

REPORT INFORMATION
  Report Type: 
  Country: None (occurrence: None)
  Receive Date: 20120522
  Receipt Date: 20120514
  Transmission Date: 20120825
  Serious: Yes (Hospitalization, Other)
  Sender: FDA-Public Use
  Company Number: PHHO2006BR21799

PATIENT
  Sex: Female
  Weight: 85 kg

DRUGS (8)
  1. GLUCOVANCE [Concomitant]
     Indication: DIABETES MELLITUS
     Dosage: 1 DF, BID
     Route: 048
     Dates: start: 20060101
  2. ALPRAZOLAM [Concomitant]
     Indication: PANIC DISORDER
     Dosage: 2 DF, DAILY
     Route: 048
  3. DIOVAN HCT [Suspect]
     Dosage: 1 DF (160 MG VALSA AND 25 MG HYDRO), PER DAY
  4. DIOVAN HCT [Suspect]
     Indication: HYPERTENSION
     Dosage: 1 DF (80 MG VALS /12.5 MG HYDRO), PER DAY
     Route: 048
     Dates: start: 20020101
  5. ALBUTEROL [Concomitant]
     Indication: ASTHMA
  6. BECLOMETHASONE DIPROPIONATE [Suspect]
     Indication: ASTHMA
  7. ATROVENT [Concomitant]
     Indication: ASTHMA
  8. METFORMIN HCL [Concomitant]
     Indication: DIABETES MELLITUS
     Dosage: 3 DF, UNK
     Route: 048
     Dates: start: 20030101

REACTIONS (14)
  - DIABETES MELLITUS [None]
  - DEVICE RELATED INFECTION [None]
  - NERVOUSNESS [None]
  - HEPATOMEGALY [None]
  - TRANSAMINASES INCREASED [None]
  - DRUG ADMINISTRATION ERROR [None]
  - HYPOTENSION [None]
  - OEDEMA PERIPHERAL [None]
  - HYPERGLYCAEMIA [None]
  - MENISCUS LESION [None]
  - GLYCOSYLATED HAEMOGLOBIN INCREASED [None]
  - BLOOD PRESSURE INCREASED [None]
  - DRUG INEFFECTIVE [None]
  - ABDOMINAL PAIN UPPER [None]
